FAERS Safety Report 7479778-9 (Version None)
Quarter: 2011Q2

REPORT INFORMATION
  Report Type: 
  Country: None (occurrence: None)
  Receive Date: 20110513
  Receipt Date: 20110511
  Transmission Date: 20111010
  Serious: Yes (Hospitalization)
  Sender: FDA-Public Use
  Company Number: SE-MERCK-1105SWE00016

PATIENT
  Age: 73 Year
  Sex: Female

DRUGS (9)
  1. COZAAR [Suspect]
     Indication: ESSENTIAL HYPERTENSION
     Route: 048
  2. UREA [Concomitant]
     Route: 065
  3. CLOBETASONE BUTYRATE [Concomitant]
     Route: 065
  4. FUROSEMIDE [Concomitant]
     Route: 065
  5. SIMVASTATIN [Concomitant]
     Route: 065
  6. CYANOCOBALAMIN [Concomitant]
     Route: 048
  7. INSULIN ASPART, BIPHASIC ISOPHANE [INJECTION] [Concomitant]
     Route: 051
  8. ALLOPURINOL [Concomitant]
     Route: 065
  9. ASPIRIN [Concomitant]
     Route: 048

REACTIONS (1)
  - HYPERKALAEMIA [None]
